FAERS Safety Report 11514514 (Version 1)
Quarter: 2015Q3

REPORT INFORMATION
  Report Type: Report from Study
  Country: TR (occurrence: TR)
  Receive Date: 20150916
  Receipt Date: 20150916
  Transmission Date: 20151125
  Serious: Yes (Other)
  Sender: FDA-Public Use
  Company Number: TR-ASTRAZENECA-2015SE88302

PATIENT
  Age: 45 Year
  Sex: Female
  Weight: 120 kg

DRUGS (6)
  1. OKSAMEN [Suspect]
     Active Substance: TENOXICAM
     Indication: ANALGESIC THERAPY
     Route: 065
     Dates: start: 201507, end: 201507
  2. ISOPTIN SR [Concomitant]
     Active Substance: VERAPAMIL HYDROCHLORIDE
     Indication: HYPERTENSION
  3. BYETTA [Suspect]
     Active Substance: EXENATIDE
     Indication: TYPE 2 DIABETES MELLITUS
     Route: 058
     Dates: start: 20150702, end: 20150709
  4. EUTHYROX [Concomitant]
     Active Substance: LEVOTHYROXINE SODIUM
     Indication: HYPOTHYROIDISM
  5. BYETTA [Suspect]
     Active Substance: EXENATIDE
     Indication: WEIGHT INCREASED
     Route: 058
     Dates: start: 20150702, end: 20150709
  6. GLIFOR [Concomitant]
     Active Substance: METFORMIN HYDROCHLORIDE
     Indication: TYPE 2 DIABETES MELLITUS
     Route: 048

REACTIONS (5)
  - Erythema [Unknown]
  - Respiratory distress [Recovered/Resolved]
  - Wound [Recovered/Resolved]
  - Pruritus [Unknown]
  - Hypersensitivity [Recovered/Resolved]

NARRATIVE: CASE EVENT DATE: 201507
